FAERS Safety Report 6295336-6 (Version None)
Quarter: 2009Q3

REPORT INFORMATION
  Report Type: 
  Country: None (occurrence: None)
  Receive Date: 20090730
  Receipt Date: 20090722
  Transmission Date: 20100115
  Serious: Yes (Hospitalization)
  Sender: FDA-Public Use
  Company Number: 2009-201157-NL

PATIENT
  Age: 35 Year
  Sex: Female

DRUGS (6)
  1. MENOTROPINS [Suspect]
     Indication: IN VITRO FERTILISATION
     Dosage: DF
  2. CHORIONIC GONADOTROPIN [Suspect]
     Indication: IN VITRO FERTILISATION
     Dosage: DF
  3. PROGESTERONE [Suspect]
     Indication: IN VITRO FERTILISATION
     Dosage: DF
  4. CHORIONIC GONADOTROPIN [Concomitant]
  5. TRIPTORELIN ACETATE [Concomitant]
  6. MENOTROPINS [Concomitant]

REACTIONS (4)
  - ABORTION SPONTANEOUS [None]
  - DRUG EXPOSURE DURING PREGNANCY [None]
  - PELVIC PAIN [None]
  - PREGNANCY [None]
